FAERS Safety Report 25305462 (Version 1)
Quarter: 2025Q2

REPORT INFORMATION
  Report Type: Spontaneous
  Country: US (occurrence: None)
  Receive Date: 20250513
  Receipt Date: 20250513
  Transmission Date: 20250717
  Serious: Yes (Hospitalization)
  Sender: FDA-CTU
  Company Number: None

PATIENT
  Age: 69 Year
  Sex: Male
  Weight: 106 kg

DRUGS (1)
  1. BACLOFEN [Suspect]
     Active Substance: BACLOFEN
     Indication: Musculoskeletal pain
     Dosage: FREQUENCY : DAILY;?
     Route: 048
     Dates: start: 20250119, end: 20250123

REACTIONS (12)
  - Confusional state [None]
  - Delirium [None]
  - Somnolence [None]
  - Hallucination [None]
  - Sedation [None]
  - Mental status changes [None]
  - Toxicity to various agents [None]
  - Myoclonus [None]
  - Arthralgia [None]
  - Haemodialysis [None]
  - Asthenia [None]
  - Therapy cessation [None]

NARRATIVE: CASE EVENT DATE: 20250123
